FAERS Safety Report 11250933 (Version 1)
Quarter: 2015Q3

REPORT INFORMATION
  Report Type: Spontaneous
  Country: US (occurrence: US)
  Receive Date: 20150708
  Receipt Date: 20150708
  Transmission Date: 20151125
  Serious: Yes (Hospitalization)
  Sender: FDA-Public Use
  Company Number: US-ELI_LILLY_AND_COMPANY-US201008001710

PATIENT
  Age: 37 Year
  Sex: Male

DRUGS (7)
  1. GEMZAR [Suspect]
     Active Substance: GEMCITABINE HYDROCHLORIDE
     Indication: PANCREATIC CARCINOMA
     Dosage: UNK, UNKNOWN
     Route: 065
  2. DEXAMETHASONE. [Concomitant]
     Active Substance: DEXAMETHASONE
     Dosage: UNK, UNKNOWN
     Route: 065
  3. NEXIUM [Concomitant]
     Active Substance: ESOMEPRAZOLE MAGNESIUM
     Dosage: UNK, UNKNOWN
     Route: 065
  4. ABRAXANE [Concomitant]
     Active Substance: PACLITAXEL
     Indication: PANCREATIC CARCINOMA
     Dosage: UNK, UNKNOWN
     Route: 042
     Dates: start: 20100316, end: 20100503
  5. IRON [Concomitant]
     Active Substance: IRON
     Dosage: UNK, UNKNOWN
     Route: 065
     Dates: start: 20100420
  6. LEVAQUIN [Concomitant]
     Active Substance: LEVOFLOXACIN
     Indication: PROPHYLAXIS
     Dosage: UNK, UNKNOWN
     Route: 065
     Dates: start: 20100727
  7. ABRAXANE [Concomitant]
     Active Substance: PACLITAXEL
     Dosage: 252 MG, UNKNOWN
     Route: 042
     Dates: start: 20100504

REACTIONS (3)
  - White blood cell count decreased [Recovered/Resolved]
  - Device related infection [Recovered/Resolved]
  - Peripheral swelling [Recovered/Resolved]

NARRATIVE: CASE EVENT DATE: 20100406
